FAERS Safety Report 9377489 (Version 3)
Quarter: 2013Q3

REPORT INFORMATION
  Report Type: Spontaneous
  Country: US (occurrence: US)
  Receive Date: 20130701
  Receipt Date: 20130911
  Transmission Date: 20140515
  Serious: Yes (Other)
  Sender: FDA-Public Use
  Company Number: US-BAYER-2013-079366

PATIENT
  Age: 23 Year
  Sex: Female
  Weight: 69.39 kg

DRUGS (1)
  1. MIRENA [Suspect]
     Indication: CONTRACEPTION
     Dosage: 20 MCG/24HR, CONT
     Route: 015
     Dates: start: 20130522

REACTIONS (6)
  - Pregnancy with contraceptive device [Not Recovered/Not Resolved]
  - Haemorrhage in pregnancy [None]
  - Breast tenderness [Not Recovered/Not Resolved]
  - Device dislocation [None]
  - Device difficult to use [None]
  - Drug ineffective [None]
